FAERS Safety Report 6881379-8 (Version None)
Quarter: 2010Q3

REPORT INFORMATION
  Report Type: 
  Country: None (occurrence: None)
  Receive Date: 20100728
  Receipt Date: 20100728
  Transmission Date: 20110219
  Serious: Yes (Hospitalization)
  Sender: FDA-Public Use
  Company Number: None

PATIENT
  Sex: Female
  Weight: 70 kg

DRUGS (4)
  1. PEG-L- ASPARAGINASE (K-H) [Suspect]
     Dosage: 8900 IU
  2. PEG-L- ASPARAGINASE (K-H) [Suspect]
  3. VINCRISTINE SULFATE [Suspect]
     Dosage: 10 MG
  4. METHOTREXATE [Suspect]
     Dosage: 1544 MG

REACTIONS (7)
  - BRAIN DEATH [None]
  - BRAIN OEDEMA [None]
  - CEREBRAL INFARCTION [None]
  - CONVULSION [None]
  - HYPOTHERMIA [None]
  - SUBDURAL HAEMORRHAGE [None]
  - VENOUS THROMBOSIS [None]
